FAERS Safety Report 6293709-9 (Version None)
Quarter: 2009Q3

REPORT INFORMATION
  Report Type: 
  Country: None (occurrence: None)
  Receive Date: 20090803
  Receipt Date: 20090729
  Transmission Date: 20100115
  Serious: Yes (Hospitalization, Other)
  Sender: FDA-Public Use
  Company Number: US-BAYER-200835910NA

PATIENT
  Age: 27 Year
  Sex: Female
  Weight: 113 kg

DRUGS (1)
  1. MIRENA [Suspect]
     Indication: CONTRACEPTION
     Dosage: CONTINUOUS
     Route: 015
     Dates: start: 20080911, end: 20081030

REACTIONS (3)
  - ECTOPIC PREGNANCY [None]
  - IUCD COMPLICATION [None]
  - IUD MIGRATION [None]
